FAERS Safety Report 6886792-0 (Version None)
Quarter: 2010Q3

REPORT INFORMATION
  Report Type: 
  Country: None (occurrence: None)
  Receive Date: 20100730
  Receipt Date: 20100719
  Transmission Date: 20110219
  Serious: Yes (Hospitalization, Other)
  Sender: FDA-Public Use
  Company Number: FR-PFIZER INC-2010072606

PATIENT
  Age: 68 Year
  Sex: Male
  Weight: 100 kg

DRUGS (11)
  1. TRIFLUCAN [Suspect]
     Indication: SYSTEMIC CANDIDA
     Dosage: 600 MG, 1X/DAY
     Route: 042
     Dates: start: 20100504, end: 20100610
  2. TRIFLUCAN [Suspect]
     Indication: ENDOCARDITIS
  3. AMLOR [Concomitant]
     Dosage: 10 MG, 1X/DAY
     Route: 048
  4. PREVISCAN [Concomitant]
     Dosage: 1 DF, PER DAY
     Route: 048
  5. LASIX [Concomitant]
     Dosage: 60 MG, 2X/DAY
     Route: 048
  6. DUPHALAC [Concomitant]
     Dosage: 1 DF, 1X/DAY
     Route: 048
  7. PANTOPRAZOLE SODIUM [Concomitant]
     Dosage: 20 MG, 1X/DAY
     Route: 048
  8. DIFFU K [Concomitant]
     Dosage: 3 INTAKES PER DAY
     Route: 048
  9. EUPRESSYL [Concomitant]
     Dosage: 60 MG, 2X/DAY
     Route: 048
  10. CORDARONE [Concomitant]
     Dosage: 200 UNK, 1X/DAY
     Route: 048
  11. ACETAMINOPHEN [Concomitant]
     Dosage: 3 G, PER DAY IN 3 INTAKES
     Route: 048

REACTIONS (2)
  - AGRANULOCYTOSIS [None]
  - FEBRILE NEUTROPENIA [None]
